FAERS Safety Report 5284397-9 (Version None)
Quarter: 2007Q1

REPORT INFORMATION
  Report Type: 
  Country: None (occurrence: None)
  Receive Date: 20070330
  Receipt Date: 20070330
  Transmission Date: 20070707
  Serious: Yes (Other)
  Sender: FDA-Public Use
  Company Number: None

PATIENT
  Age: 51 Year
  Sex: Female
  Weight: 129.2752 kg

DRUGS (2)
  1. ADVAIR DISKUS 250/50 [Suspect]
     Indication: BRONCHOSPASM
     Dosage: 1 PUFF TWICE DAILY OROPHARINGE
     Route: 049
     Dates: start: 20070305, end: 20070329
  2. ADVAIR DISKUS 250/50 [Suspect]
     Indication: COUGH
     Dosage: 1 PUFF TWICE DAILY OROPHARINGE
     Route: 049
     Dates: start: 20070305, end: 20070329

REACTIONS (6)
  - BRONCHOSPASM [None]
  - CONDITION AGGRAVATED [None]
  - COUGH [None]
  - DYSPHONIA [None]
  - INCREASED UPPER AIRWAY SECRETION [None]
  - RHINORRHOEA [None]
